FAERS Safety Report 6177940-9 (Version None)
Quarter: 2009Q2

REPORT INFORMATION
  Report Type: 
  Country: None (occurrence: None)
  Receive Date: 20090504
  Receipt Date: 20090422
  Transmission Date: 20091009
  Serious: Yes (Hospitalization, Disabling, Other)
  Sender: FDA-Public Use
  Company Number: US-MERCK-0901USA03028

PATIENT
  Age: 69 Year
  Sex: Female
  Weight: 65 kg

DRUGS (4)
  1. FOSAMAX [Suspect]
     Indication: OSTEOPOROSIS
     Route: 048
     Dates: start: 19990726, end: 20021201
  2. FOSAMAX [Suspect]
     Route: 048
     Dates: start: 20021201, end: 20070201
  3. K-DUR [Concomitant]
     Indication: BLOOD POTASSIUM DECREASED
     Route: 065
     Dates: start: 19790101
  4. SYNTHROID [Concomitant]
     Indication: THYROID DISORDER
     Route: 065
     Dates: start: 19790101

REACTIONS (23)
  - CANDIDIASIS [None]
  - CLOSTRIDIAL INFECTION [None]
  - CORNEAL DEFECT [None]
  - DEAFNESS [None]
  - DYSPHAGIA [None]
  - EAR DISORDER [None]
  - EAR HAEMORRHAGE [None]
  - EYELID PTOSIS [None]
  - FACIAL PALSY [None]
  - IMPAIRED HEALING [None]
  - INFLAMMATION [None]
  - ISCHAEMIA [None]
  - JAW DISORDER [None]
  - MASTOID DISORDER [None]
  - MYOFASCIAL PAIN SYNDROME [None]
  - ORAL TORUS [None]
  - OSTEOMYELITIS [None]
  - OSTEONECROSIS [None]
  - OSTEORADIONECROSIS [None]
  - RESORPTION BONE INCREASED [None]
  - SKIN GRAFT [None]
  - SQUAMOUS CELL CARCINOMA [None]
  - URINARY TRACT INFECTION [None]
